FAERS Safety Report 16912920 (Version 3)
Quarter: 2020Q2

REPORT INFORMATION
  Report Type: Other
  Country: DE (occurrence: DE)
  Receive Date: 20191014
  Receipt Date: 20200507
  Transmission Date: 20200713
  Serious: Yes (Other)
  Sender: FDA-Public Use
  Company Number: DE-LUPIN PHARMACEUTICALS INC.-2019-06509

PATIENT
  Age: 1 Year
  Sex: Male
  Weight: 3.82 kg

DRUGS (2)
  1. LAMOTRIGINE. [Suspect]
     Active Substance: LAMOTRIGINE
     Indication: EPILEPSY
     Dosage: 200 MILLIGRAM, BID (200-0-200)
     Route: 064
  2. LAMOTRIGINE. [Suspect]
     Active Substance: LAMOTRIGINE
     Dosage: 200 MILLIGRAM, BID (200-0-200)
     Route: 063

REACTIONS (4)
  - Atrial septal defect [Unknown]
  - Patent ductus arteriosus [Recovering/Resolving]
  - Apparent life threatening event [Recovered/Resolved]
  - Foetal exposure during pregnancy [Unknown]
